FAERS Safety Report 9895346 (Version 1)
Quarter: 2014Q1

REPORT INFORMATION
  Report Type: Spontaneous
  Country: US (occurrence: US)
  Receive Date: 20140213
  Receipt Date: 20140213
  Transmission Date: 20141002
  Serious: Yes (Other)
  Sender: FDA-Public Use
  Company Number: US-BRISTOL-MYERS SQUIBB COMPANY-18959866

PATIENT
  Age: 46 Year
  Sex: Male

DRUGS (2)
  1. ORENCIA FOR INJ [Suspect]
     Dosage: LAST INF:26FEB2013
     Route: 042
  2. LEVAQUIN [Suspect]

REACTIONS (2)
  - Respiratory tract infection [Unknown]
  - Skin ulcer [Unknown]
